FAERS Safety Report 8662525 (Version 3)
Quarter: 2012Q4

REPORT INFORMATION
  Report Type: 
  Country: PL (occurrence: None)
  Receive Date: 20120619
  Receipt Date: 20121023
  Transmission Date: 20130627
  Serious: Yes (Other)
  Sender: FDA-Public Use
  Company Number: 2012032574

PATIENT
  Age: 49 Year
  Sex: Male

DRUGS (1)
  1. HUMAN IMMUNOGLOBULIN G [Suspect]
     Indication: CHRONIC INFLAMMATORY DEMYELINATING POLYRADICULONEUROPATHY
     Dosage: 0.4 MG/KG/DAY, 5 DAYS, INTRAVENOUS
     Route: 042

REACTIONS (9)
  - Off label use [None]
  - Pyrexia [None]
  - Hypervolaemia [None]
  - Anaemia [None]
  - Haemodialysis [None]
  - Oliguria [None]
  - Face oedema [None]
  - Oedema peripheral [None]
  - Renal failure acute [None]
